FAERS Safety Report 6361902-2 (Version None)
Quarter: 2009Q3

REPORT INFORMATION
  Report Type: 
  Country: None (occurrence: None)
  Receive Date: 20090915
  Receipt Date: 20090831
  Transmission Date: 20100115
  Serious: Yes (Death)
  Sender: FDA-Public Use
  Company Number: 2009002633

PATIENT
  Age: 67 Year
  Sex: Male

DRUGS (6)
  1. ERLOTINIB HYDROCHLORIDE [Suspect]
     Indication: NON-SMALL CELL LUNG CANCER
     Dosage: ORAL
     Route: 048
     Dates: start: 20090701, end: 20090808
  2. MOVICOL (NULYTELY) [Concomitant]
  3. DEXAMETHASONE TAB [Concomitant]
  4. ZOPICLONE (ZOPLICONE) [Concomitant]
  5. MORPHINE SULFATE [Concomitant]
  6. RANITIDINE [Concomitant]

REACTIONS (2)
  - DYSPNOEA [None]
  - LOWER RESPIRATORY TRACT INFECTION [None]
